FAERS Safety Report 7456520-9 (Version None)
Quarter: 2011Q2

REPORT INFORMATION
  Report Type: 
  Country: None (occurrence: None)
  Receive Date: 20110503
  Receipt Date: 20110428
  Transmission Date: 20111010
  Serious: Yes (Hospitalization, Other)
  Sender: FDA-Public Use
  Company Number: TR-ROXANE LABORATORIES, INC.-2011-RO-00590RO

PATIENT
  Age: 17 Year
  Sex: Male
  Weight: 63 kg

DRUGS (5)
  1. RISPERIDONE [Suspect]
     Dosage: 2.5 MG
  2. METHYLPHENIDATE [Suspect]
     Indication: ATTENTION DEFICIT/HYPERACTIVITY DISORDER
     Dosage: 27 MG
  3. RISPERIDONE [Suspect]
     Indication: AGGRESSION
     Dosage: 1 MG
  4. ARIPIPRAZOLE [Suspect]
     Indication: AGGRESSION
     Dosage: 5 MG
  5. METHYLPHENIDATE [Suspect]
     Dosage: 54 MG

REACTIONS (2)
  - PSYCHOTIC DISORDER [None]
  - DRUG INEFFECTIVE [None]
